FAERS Safety Report 13900645 (Version 1)
Quarter: 2017Q3

REPORT INFORMATION
  Report Type: Other
  Country: CA (occurrence: CA)
  Receive Date: 20170824
  Receipt Date: 20170824
  Transmission Date: 20171127
  Serious: Yes (Other)
  Sender: FDA-Public Use
  Company Number: CA-APOTEX-2017AP016847

PATIENT
  Age: 65 Year
  Sex: Female

DRUGS (2)
  1. APO-RAMIPRIL [Suspect]
     Active Substance: RAMIPRIL
     Indication: HYPERTENSION
     Dosage: UNK
     Route: 065
  2. APO-RAMIPRIL [Suspect]
     Active Substance: RAMIPRIL
     Indication: BLOOD PRESSURE INCREASED

REACTIONS (1)
  - Hypertension [Recovering/Resolving]
